FAERS Safety Report 22616496 (Version 1)
Quarter: 2023Q2

REPORT INFORMATION
  Report Type: Other
  Country: DK (occurrence: DK)
  Receive Date: 20230619
  Receipt Date: 20230619
  Transmission Date: 20230721
  Serious: Yes (Disabling)
  Sender: FDA-Public Use
  Company Number: None

PATIENT
  Age: 43 Year
  Sex: Female

DRUGS (8)
  1. MIRABEGRON [Suspect]
     Active Substance: MIRABEGRON
     Indication: Hypertonic bladder
     Route: 048
     Dates: start: 20211108
  2. OZEMPIC [Concomitant]
     Active Substance: SEMAGLUTIDE
     Indication: Product used for unknown indication
     Route: 058
     Dates: start: 20210611, end: 20220908
  3. SULFAMETHIZOLE [Concomitant]
     Active Substance: SULFAMETHIZOLE
     Indication: Urinary tract infection
     Route: 048
     Dates: end: 20220724
  4. ALBUTEROL SULFATE [Concomitant]
     Active Substance: ALBUTEROL SULFATE
     Indication: Asthma
     Dosage: 200 ?G, AS NEEDED (MAXIMUM 4 TIMES DAILY)
     Route: 050
     Dates: start: 20200622
  5. ANDOLEX [Concomitant]
     Indication: Stomatitis
     Dosage: UNK UNK, AS NEEDED ( RINSE MOUTH WITH 15 ML FOR MIN. 30 SEC. EVERY 1-1? HOURS)
     Route: 048
  6. DYMISTA [Concomitant]
     Active Substance: AZELASTINE HYDROCHLORIDE\FLUTICASONE PROPIONATE
     Indication: Rhinitis allergic
     Route: 045
     Dates: start: 20200630
  7. PULMICORT TURBUHALER [Concomitant]
     Active Substance: BUDESONIDE
     Indication: Asthma prophylaxis
     Dosage: UNK UNK, ONCE DAILY (2 + 1-2 INHALATIONS A DAY) (TURBUHALER)
     Route: 050
     Dates: start: 20170308
  8. OXIS [Concomitant]
     Active Substance: FORMOTEROL FUMARATE
     Indication: Asthma
     Route: 050
     Dates: start: 20140527

REACTIONS (2)
  - Bladder pain [Not Recovered/Not Resolved]
  - Bladder injury [Not Recovered/Not Resolved]

NARRATIVE: CASE EVENT DATE: 20220301
